FAERS Safety Report 16093016 (Version 1)
Quarter: 2019Q1

REPORT INFORMATION
  Report Type: Spontaneous
  Country: FR (occurrence: FR)
  Receive Date: 20190320
  Receipt Date: 20190320
  Transmission Date: 20190418
  Serious: Yes (Hospitalization, Other)
  Sender: FDA-Public Use
  Company Number: FR-ACCORD-113693

PATIENT
  Age: 54 Year
  Sex: Female
  Weight: 74 kg

DRUGS (7)
  1. ONDANSETRON [Suspect]
     Active Substance: ONDANSETRON
     Indication: PROPHYLAXIS OF NAUSEA AND VOMITING
     Route: 041
     Dates: start: 20180918, end: 20180918
  2. POLARAMINE [Suspect]
     Active Substance: DEXCHLORPHENIRAMINE MALEATE
     Indication: ANTIALLERGIC THERAPY
     Route: 042
     Dates: start: 20180918, end: 20180918
  3. EMEND [Suspect]
     Active Substance: APREPITANT
     Indication: PROPHYLAXIS OF NAUSEA AND VOMITING
     Route: 048
     Dates: start: 20180918, end: 20180918
  4. CISPLATINE ACCORD [Suspect]
     Active Substance: CISPLATIN
     Indication: ADENOCARCINOMA OF THE CERVIX
     Route: 041
     Dates: start: 20180918, end: 20180918
  5. PACLITAXEL ACCORD [Suspect]
     Active Substance: PACLITAXEL
     Indication: ADENOCARCINOMA OF THE CERVIX
     Route: 041
     Dates: start: 20180918, end: 20180918
  6. METHYLPREDNISOLONE. [Suspect]
     Active Substance: METHYLPREDNISOLONE
     Indication: PROPHYLAXIS
     Route: 041
     Dates: start: 20180918, end: 20180918
  7. RANITIDINE. [Suspect]
     Active Substance: RANITIDINE
     Indication: PROPHYLAXIS
     Route: 041
     Dates: start: 20180918, end: 20180918

REACTIONS (9)
  - Weight decreased [Recovered/Resolved]
  - Dyspnoea [Recovered/Resolved]
  - Tremor [Recovered/Resolved]
  - Hypersensitivity [Recovered/Resolved]
  - Diarrhoea [Recovered/Resolved]
  - Constipation [Recovered/Resolved]
  - Rash erythematous [Recovered/Resolved]
  - Dysuria [Recovered/Resolved]
  - Nausea [Recovered/Resolved]

NARRATIVE: CASE EVENT DATE: 20180919
